FAERS Safety Report 14480914 (Version 1)
Quarter: 2018Q1

REPORT INFORMATION
  Report Type: Report from Study
  Country: GT (occurrence: GT)
  Receive Date: 20180202
  Receipt Date: 20180202
  Transmission Date: 20180509
  Serious: Yes (Other)
  Sender: FDA-Public Use
  Company Number: PHHY2018GT016152

PATIENT
  Age: 80 Year
  Sex: Female

DRUGS (3)
  1. GALVUS MET [Suspect]
     Active Substance: METFORMIN HYDROCHLORIDE\VILDAGLIPTIN
     Dosage: (METFORMIN 850 MG, VILDAGLIPTIN 50 MG)
     Route: 065
     Dates: end: 201711
  2. EXFORGE [Suspect]
     Active Substance: AMLODIPINE BESYLATE\VALSARTAN
     Indication: PRODUCT USED FOR UNKNOWN INDICATION
     Dosage: (AMLODIPINE 5 MG, VALSARTAN 320 MG)
     Route: 065
     Dates: end: 201711
  3. GALVUS MET [Suspect]
     Active Substance: METFORMIN HYDROCHLORIDE\VILDAGLIPTIN
     Indication: PRODUCT USED FOR UNKNOWN INDICATION
     Dosage: (METFORMIN 1000 MG, VILDAGLIPTIN 50 MG)
     Route: 065
     Dates: end: 201711

REACTIONS (4)
  - Diabetes mellitus [Unknown]
  - Feeling abnormal [Unknown]
  - Blood pressure decreased [Unknown]
  - Somnolence [Unknown]
